FAERS Safety Report 9903761 (Version 3)
Quarter: 2015Q3

REPORT INFORMATION
  Report Type: Report from Study
  Country: US (occurrence: US)
  Receive Date: 20140218
  Receipt Date: 20150929
  Transmission Date: 20151125
  Serious: Yes (Hospitalization)
  Sender: FDA-Public Use
  Company Number: US-ROCHE-1346873

PATIENT
  Age: 59 Year
  Sex: Female
  Weight: 81 kg

DRUGS (11)
  1. SYNTHROID [Concomitant]
     Active Substance: LEVOTHYROXINE SODIUM
     Dosage: EVERY MORNING ON AN EMPTY STOMACH
     Route: 048
  2. SYMBICORT [Concomitant]
     Active Substance: BUDESONIDE\FORMOTEROL FUMARATE DIHYDRATE
     Dosage: 2 PUFF?160-4.5 MCG/ACT AEROSOL 2 PUFFS TWICE A DAY
     Route: 065
  3. SINGULAIR [Concomitant]
     Active Substance: MONTELUKAST SODIUM
     Dosage: 1 TAB IN THE EVENING
     Route: 048
  4. OMEPRAZOLE. [Concomitant]
     Active Substance: OMEPRAZOLE
     Dosage: DELAYED RELEASE
     Route: 048
  5. METFORMIN [Concomitant]
     Active Substance: METFORMIN HYDROCHLORIDE
  6. ALBUTEROL. [Concomitant]
     Active Substance: ALBUTEROL
     Dosage: AS REQUIRED
     Route: 065
  7. ZOCOR [Concomitant]
     Active Substance: SIMVASTATIN
  8. DIOVAN [Concomitant]
     Active Substance: VALSARTAN
  9. XOLAIR [Suspect]
     Active Substance: OMALIZUMAB
     Indication: ASTHMA
     Route: 058
  10. ALBUTEROL. [Concomitant]
     Active Substance: ALBUTEROL
     Route: 065
  11. PREDNISONE. [Concomitant]
     Active Substance: PREDNISONE

REACTIONS (6)
  - Treatment noncompliance [Unknown]
  - Asthma [Recovered/Resolved]
  - Weight decreased [Unknown]
  - Nasal turbinate abnormality [Unknown]
  - Nasal oedema [Unknown]
  - Cough [Unknown]

NARRATIVE: CASE EVENT DATE: 20121218
